FAERS Safety Report 8811376 (Version 1)
Quarter: 2012Q4

REPORT INFORMATION
  Report Type: Spontaneous
  Country: GB (occurrence: None)
  Receive Date: 20120924
  Receipt Date: 20120924
  Transmission Date: 20130627
  Serious: Yes (Life-Threatening)
  Sender: FDA-Public Use
  Company Number: GER/GER/12/0025890

PATIENT
  Age: 76 Year
  Sex: Female
  Weight: 60 kg

DRUGS (11)
  1. METFORMIN (METFORMIN) [Suspect]
     Indication: TYPE II DIABETES MELLITUS
     Route: 048
     Dates: start: 2008
  2. DIGITOXIN [Concomitant]
  3. METOPROLOL [Concomitant]
  4. RANITIDINE (RANITIDINE HYDROCHLORIDE) [Concomitant]
  5. CALCIUM BT (CALCIUM) [Concomitant]
  6. AMYLASE 20000 (AMYLASE) [Concomitant]
  7. VITAMIN B1 (THIAMINE HYDROCHLORIDE) [Concomitant]
  8. CLOPIDOGREL [Concomitant]
  9. AMIODARONE [Concomitant]
  10. TORASEMID (TORASEMIDE) [Concomitant]
  11. PHENPROCOUMON NACH INR 2.5 (PHENPROCOUMON) [Concomitant]

REACTIONS (2)
  - Lactic acidosis [None]
  - Renal failure acute [None]
